FAERS Safety Report 4281593-4 (Version None)
Quarter: 2004Q1

REPORT INFORMATION
  Report Type: 
  Country: None (occurrence: None)
  Receive Date: 20040128
  Receipt Date: 20040120
  Transmission Date: 20041129
  Serious: Yes (Hospitalization)
  Sender: FDA-Public Use
  Company Number: 2004195788JP

PATIENT
  Age: 5 Year
  Sex: Male
  Weight: 17 kg

DRUGS (5)
  1. DALACIN S INJECTION(CLINDAMYCIN)DALACIN S(INJECTION(CLINDAMYCIN) SOLUT [Suspect]
     Indication: INFECTION
     Dosage: QD, IV
     Route: 042
     Dates: start: 20031224, end: 20031224
  2. CEFCAPENE PIVOXIL HYDROCHLORIDE (CEFCAPENE PIVOXIL HYDROCHLORIDE) [Suspect]
     Indication: INFECTION
     Dosage: QD
     Dates: start: 20031218, end: 20031218
  3. CEFCAPENE PIVOXIL HYDROCHLORIDE (CEFCAPENE PIVOXIL HYDROCHLORIDE) [Suspect]
     Indication: INFECTION
     Dosage: QD
     Dates: start: 20031223, end: 20031223
  4. CLARITHROMYCIN [Concomitant]
  5. OTHER ANALGESICS AND ANTIPYRETICS [Concomitant]

REACTIONS (7)
  - CHILLS [None]
  - HAEMOLYTIC ANAEMIA [None]
  - PERITONSILLAR ABSCESS [None]
  - PYREXIA [None]
  - TONSILLITIS [None]
  - URINARY OCCULT BLOOD POSITIVE [None]
  - WHITE BLOOD CELL COUNT INCREASED [None]
